FAERS Safety Report 7045268-0 (Version None)
Quarter: 2010Q4

REPORT INFORMATION
  Report Type: 
  Country: None (occurrence: None)
  Receive Date: 20101014
  Receipt Date: 20100730
  Transmission Date: 20110411
  Serious: No
  Sender: FDA-Public Use
  Company Number: US-ALLERGAN-1009962US

PATIENT
  Age: 73 Year
  Sex: Female

DRUGS (2)
  1. LATISSE [Suspect]
     Indication: GROWTH OF EYELASHES
     Dosage: 1 GTT, QHS
     Route: 061
     Dates: start: 20100726, end: 20100727
  2. COUMADIN [Concomitant]
     Indication: HEREDITARY DISORDER
     Dosage: 7.5 MG, QHS
     Route: 048

REACTIONS (1)
  - OCULAR HYPERAEMIA [None]
